FAERS Safety Report 14168223 (Version 1)
Quarter: 2017Q4

REPORT INFORMATION
  Report Type: Spontaneous
  Country: DE (occurrence: DE)
  Receive Date: 20171108
  Receipt Date: 20171108
  Transmission Date: 20180321
  Serious: Yes (Death, Life-Threatening, Hospitalization)
  Sender: FDA-Public Use
  Company Number: DE-ROCHE-2014598

PATIENT
  Age: 65 Year
  Sex: Male
  Weight: 84.5 kg

DRUGS (6)
  1. PROGRAF [Suspect]
     Active Substance: TACROLIMUS\TACROLIMUS ANHYDROUS
     Indication: LUNG TRANSPLANT
     Route: 065
     Dates: start: 20131215
  2. CELLCEPT [Suspect]
     Active Substance: MYCOPHENOLATE MOFETIL\MYCOPHENOLATE MOFETIL HYDROCHLORIDE
     Route: 065
     Dates: start: 20150619
  3. PRAVASTATIN. [Concomitant]
     Active Substance: PRAVASTATIN
     Route: 065
  4. CELLCEPT [Suspect]
     Active Substance: MYCOPHENOLATE MOFETIL\MYCOPHENOLATE MOFETIL HYDROCHLORIDE
     Indication: LUNG TRANSPLANT
     Dosage: RECEIVED THE MOST RECENT DOSE 18/JUN/2015
     Route: 065
     Dates: start: 20131215
  5. DECORTIN [Suspect]
     Active Substance: PREDNISONE
     Indication: LUNG TRANSPLANT
     Route: 065
     Dates: start: 20131215
  6. ITRACONAZOLE. [Concomitant]
     Active Substance: ITRACONAZOLE
     Route: 065

REACTIONS (14)
  - Hyperkalaemia [Unknown]
  - Cholelithiasis [Unknown]
  - Pancreatic steatosis [Unknown]
  - Splenomegaly [Unknown]
  - Hepatic encephalopathy [Fatal]
  - Hepatorenal syndrome [Unknown]
  - Hepatitis B reactivation [Fatal]
  - Metapneumovirus infection [Recovered/Resolved]
  - Hepatic fibrosis [Unknown]
  - Ascites [Unknown]
  - Pancreatitis [Unknown]
  - Pneumonia viral [Recovered/Resolved]
  - Hepatic steatosis [Unknown]
  - Pneumonia viral [Unknown]

NARRATIVE: CASE EVENT DATE: 20150309
